FAERS Safety Report 7469743-X (Version None)
Quarter: 2011Q2

REPORT INFORMATION
  Report Type: 
  Country: None (occurrence: None)
  Receive Date: 20110510
  Receipt Date: 20110504
  Transmission Date: 20111010
  Serious: Yes (Hospitalization)
  Sender: FDA-Public Use
  Company Number: GB-SANOFI-AVENTIS-2011SA018468

PATIENT
  Age: 8 Year
  Sex: Female

DRUGS (2)
  1. INSULIN [Suspect]
     Dates: start: 20050101
  2. LANTUS [Suspect]
     Dosage: DOSE:12 UNIT(S)
     Route: 065
     Dates: start: 20050101

REACTIONS (1)
  - DIABETIC KETOACIDOSIS [None]
